FAERS Safety Report 20574077 (Version 1)
Quarter: 2022Q1

REPORT INFORMATION
  Report Type: Spontaneous
  Country: CA (occurrence: CA)
  Receive Date: 20220309
  Receipt Date: 20220309
  Transmission Date: 20220423
  Serious: Yes (Hospitalization, Other)
  Sender: FDA-Public Use
  Company Number: CA-PFIZER INC-202200340171

PATIENT
  Age: 76 Year
  Sex: Female

DRUGS (1)
  1. LIPITOR [Suspect]
     Active Substance: ATORVASTATIN CALCIUM
     Indication: Cerebrovascular accident
     Dosage: UNK

REACTIONS (5)
  - Fatigue [Unknown]
  - Pain in extremity [Unknown]
  - Dysstasia [Unknown]
  - COVID-19 [Unknown]
  - Renal failure [Unknown]

NARRATIVE: CASE EVENT DATE: 20211201
